FAERS Safety Report 10510074 (Version 1)
Quarter: 2014Q4

REPORT INFORMATION
  Report Type: Spontaneous
  Country: US (occurrence: None)
  Receive Date: 20141008
  Receipt Date: 20141008
  Transmission Date: 20150528
  Serious: Yes (Hospitalization)
  Sender: FDA-Public Use
  Company Number: INT_00445_2014

PATIENT
  Age: 28 Year
  Sex: Female

DRUGS (7)
  1. VINBLASTINE [Suspect]
     Active Substance: VINBLASTINE
     Indication: OVARIAN CANCER
     Dosage: OVER 30 MINUTES ON DAY 1, FOR 6 CYCLES (NOT OTHERWISE SPECIFIED)
     Route: 042
  2. DOXORUBICIN [Suspect]
     Active Substance: DOXORUBICIN
     Indication: OVARIAN CANCER
     Dosage: OVER 30 MINUTES ON DAY 3, FOR 3 CYCLES (NOT OTHERWISE SPECIFIED)
     Route: 042
  3. ETOPOSIDE. [Suspect]
     Active Substance: ETOPOSIDE
     Indication: OVARIAN CANCER
     Dosage: OVER 2 HOURS ON DAY 3, FOR 3 CYCLES
     Route: 042
  4. BLEOMYCIN [Suspect]
     Active Substance: BLEOMYCIN SULFATE
     Indication: OVARIAN CANCER
     Dosage: OVER 24 HOURS ON DAY 2, FOR 4 CYCLES (NOT OTHERWISE SPECIFIED)
     Route: 042
  5. PEGFILGRASTIM [Concomitant]
     Active Substance: PEGFILGRASTIM
  6. CISPLATIN (HQ SPECIALTY) [Suspect]
     Active Substance: CISPLATIN
     Indication: OVARIAN CANCER
     Dosage: OVER 4 HOURS ON DAY 1 FOR 3 CYCLES
     Route: 042
  7. CYCLOPHOSPHAMIDE. [Suspect]
     Active Substance: CYCLOPHOSPHAMIDE
     Indication: OVARIAN CANCER
     Dosage: OVER 60 MINUTES ON DAY 2, FOR 3 CYCLES (NOT OTHERWISE SPECIFIED)
     Route: 042

REACTIONS (10)
  - Acute kidney injury [None]
  - Nausea [None]
  - Peripheral sensorimotor neuropathy [None]
  - Streptococcal bacteraemia [None]
  - Haematotoxicity [None]
  - Vomiting [None]
  - Pancytopenia [None]
  - Bone marrow failure [None]
  - Febrile neutropenia [None]
  - Hysterectomy [None]
